FAERS Safety Report 6295073 (Version 16)
Quarter: 2013Q3

REPORT INFORMATION
  Report Type: Spontaneous
  Country: US (occurrence: US)
  Receive Date: 20070424
  Receipt Date: 20130807
  Transmission Date: 20140515
  Serious: Yes (Other)
  Sender: FDA-Public Use
  Company Number: PHEH2007US05484

PATIENT
  Age: 61 Year
  Sex: Male

DRUGS (24)
  1. ZOMETA [Suspect]
     Indication: METASTASES TO PROSTATE
     Dosage: 4 MG, QMO
     Route: 042
     Dates: start: 20030819
  2. AREDIA [Suspect]
     Route: 042
  3. CASODEX [Concomitant]
     Dosage: 50 MG, UNK
     Dates: start: 1997
  4. AUGMENTIN [Concomitant]
     Dosage: 875 MG, UNK
     Dates: start: 1999
  5. CATAPRES-TTS-3 [Concomitant]
     Dates: start: 1997
  6. PENICILLIN VK [Concomitant]
     Dosage: 500 MG, UNK
     Dates: start: 1997
  7. HYDROCODONE W/APAP [Concomitant]
     Dates: start: 1997
  8. METHOCARBAMOL [Concomitant]
     Dosage: 750 MG, UNK
     Dates: start: 2002
  9. VICOPROFEN [Concomitant]
     Dosage: 7.5 MG, UNK
     Dates: start: 2002
  10. GLUCOVANCE [Concomitant]
     Dosage: 2.5 MG, UNK
     Dates: start: 2002
  11. GEMFIBROZIL [Concomitant]
     Dosage: 600 MG, UNK
     Dates: start: 2003
  12. GLYBURIDE W/METFORMIN [Concomitant]
     Dates: start: 2004
  13. VYTORIN [Concomitant]
     Dosage: 10 MG, UNK
     Dates: start: 2005
  14. CHLORHEXIDINE [Concomitant]
     Dates: start: 2006
  15. LUPRON [Concomitant]
  16. ZOLADEX [Concomitant]
  17. GLUCOPHAGE [Concomitant]
  18. VICODIN [Concomitant]
  19. UNASYN [Concomitant]
  20. FLORINEF [Concomitant]
  21. FERROUS SULFATE [Concomitant]
  22. INSULIN [Concomitant]
  23. OXYCODONE [Concomitant]
  24. SENOKOT                                 /UNK/ [Concomitant]

REACTIONS (64)
  - Osteonecrosis of jaw [Unknown]
  - Injury [Unknown]
  - Pain [Unknown]
  - Periodontitis [Unknown]
  - Facial pain [Unknown]
  - Osteitis [Unknown]
  - Osteomyelitis [Unknown]
  - Anxiety [Unknown]
  - Anaemia [Unknown]
  - Asthma [Unknown]
  - Loss of consciousness [Unknown]
  - Orthostatic hypotension [Unknown]
  - Syncope [Unknown]
  - Hepatitis [Unknown]
  - Head injury [Unknown]
  - Migraine [Unknown]
  - Depression [Unknown]
  - Paraesthesia [Unknown]
  - Hypoaesthesia [Unknown]
  - Asthenia [Unknown]
  - Chronic sinusitis [Unknown]
  - Confusional state [Unknown]
  - Headache [Unknown]
  - Weight decreased [Unknown]
  - Hot flush [Unknown]
  - Dizziness [Unknown]
  - Eczema [Unknown]
  - Bone lesion [Unknown]
  - Cholelithiasis [Unknown]
  - Emphysema [Unknown]
  - Fatigue [Unknown]
  - Back pain [Unknown]
  - Rib fracture [Recovered/Resolved]
  - Libido decreased [Unknown]
  - Dilatation atrial [Unknown]
  - Haematuria [Unknown]
  - Blood urine present [Unknown]
  - Presbyopia [Unknown]
  - Astigmatism [Unknown]
  - Osteoporosis [Unknown]
  - Myopia [Unknown]
  - Pleural effusion [Unknown]
  - Pulmonary oedema [Unknown]
  - Exposed bone in jaw [Unknown]
  - Actinomycosis [Unknown]
  - Hypoglycaemia [Unknown]
  - Otitis media [Unknown]
  - Upper respiratory tract infection [Unknown]
  - Tooth loss [Unknown]
  - Contusion [Unknown]
  - Ligament sprain [Unknown]
  - Discomfort [Unknown]
  - Oedema [Unknown]
  - Hypotension [Unknown]
  - Fistula [Unknown]
  - Pathological fracture [Unknown]
  - Congenital jaw malformation [Unknown]
  - Aortic calcification [Unknown]
  - Aortic arteriosclerosis [Unknown]
  - Arthralgia [Unknown]
  - Osteoarthritis [Unknown]
  - Metastases to bone [Unknown]
  - Malignant neoplasm progression [Unknown]
  - Dupuytren^s contracture [Unknown]
